FAERS Safety Report 5716918-3 (Version None)
Quarter: 2008Q2

REPORT INFORMATION
  Report Type: 
  Country: None (occurrence: None)
  Receive Date: 20080422
  Receipt Date: 20080415
  Transmission Date: 20081010
  Serious: Yes (Other)
  Sender: FDA-Public Use
  Company Number: 2008SP004685

PATIENT
  Age: 55 Year
  Sex: Male

DRUGS (12)
  1. INTRON A [Suspect]
     Indication: GLEICH'S SYNDROME
     Dosage: 2.5 MIU; SC
     Route: 058
     Dates: start: 20060201
  2. PREDNISON [Concomitant]
  3. PREDNISONE TAB [Concomitant]
  4. LITHIUM CARBONATE [Concomitant]
  5. FAMOTIDINE [Concomitant]
  6. REACTINE [Concomitant]
  7. NASONEX [Concomitant]
  8. PROCTO FOAM HEMORROIDAL [Concomitant]
  9. DEXAMETHASONE DIPROPIONATE [Concomitant]
  10. FOSAMAX [Concomitant]
  11. ATIVAN [Concomitant]
  12. GLUCOSAMINE [Concomitant]

REACTIONS (18)
  - ANOREXIA [None]
  - ARTHRALGIA [None]
  - ASTHENIA [None]
  - BONE PAIN [None]
  - CHILLS [None]
  - CONFUSIONAL STATE [None]
  - DEHYDRATION [None]
  - DEMYELINATION [None]
  - DRY MOUTH [None]
  - DYSGEUSIA [None]
  - FATIGUE [None]
  - FLANK PAIN [None]
  - HYPOAESTHESIA [None]
  - MICTURITION URGENCY [None]
  - NERVE INJURY [None]
  - PERIPHERAL COLDNESS [None]
  - SLEEP DISORDER [None]
  - WEIGHT GAIN POOR [None]
